FAERS Safety Report 9053703 (Version 1)
Quarter: 2013Q1

REPORT INFORMATION
  Report Type: Spontaneous
  Country: US (occurrence: None)
  Receive Date: 20130201
  Receipt Date: 20130201
  Transmission Date: 20140127
  Serious: Yes (Death)
  Sender: FDA-Public Use
  Company Number: None

PATIENT
  Age: 62 Year
  Sex: Male
  Weight: 83.92 kg

DRUGS (1)
  1. XGEVA [Suspect]

REACTIONS (6)
  - Blood calcium decreased [None]
  - Asthenia [None]
  - Pain [None]
  - Confusional state [None]
  - Dysstasia [None]
  - Malaise [None]
